FAERS Safety Report 21420757 (Version 2)
Quarter: 2022Q4

REPORT INFORMATION
  Report Type: Report from Study
  Country: FR (occurrence: FR)
  Receive Date: 20221007
  Receipt Date: 20221103
  Transmission Date: 20230113
  Serious: Yes (Hospitalization)
  Sender: FDA-Public Use
  Company Number: FR-JNJFOC-20220954068

PATIENT
  Age: 59 Year
  Sex: Female
  Weight: 55 kg

DRUGS (12)
  1. SPRAVATO [Suspect]
     Active Substance: ESKETAMINE
     Indication: Depression
     Dosage: 2 DOSES
     Dates: start: 20220520, end: 20220522
  2. SPRAVATO [Suspect]
     Active Substance: ESKETAMINE
     Dosage: 6 DOSES
     Dates: start: 20220527, end: 20220713
  3. SPRAVATO [Suspect]
     Active Substance: ESKETAMINE
     Dosage: 7 DOSES
     Dates: start: 20220721, end: 20220905
  4. MIANSERIN HYDROCHLORIDE [Concomitant]
     Active Substance: MIANSERIN HYDROCHLORIDE
     Indication: Depression
     Dates: start: 2013
  5. MIANSERIN HYDROCHLORIDE [Concomitant]
     Active Substance: MIANSERIN HYDROCHLORIDE
     Dates: start: 2020, end: 2022
  6. VENLAFAXINE [Concomitant]
     Active Substance: VENLAFAXINE HYDROCHLORIDE
     Indication: Depression
     Dates: start: 2020, end: 2022
  7. PAROXETINE [Concomitant]
     Active Substance: PAROXETINE
     Indication: Depression
  8. LEVOTHYROXINE [Concomitant]
     Active Substance: LEVOTHYROXINE
     Indication: Hypothyroidism
  9. BROMAZEPAM [Concomitant]
     Active Substance: BROMAZEPAM
     Indication: Anxiety
     Dates: start: 202205
  10. TOPIRAMATE [Concomitant]
     Active Substance: TOPIRAMATE
     Indication: Migraine
  11. LOXAPINE [Concomitant]
     Active Substance: LOXAPINE
     Indication: Anxiety
     Dates: end: 202205
  12. TETRABENAZINE [Concomitant]
     Active Substance: TETRABENAZINE
     Indication: Tremor
     Dates: start: 20220706

REACTIONS (3)
  - Hip surgery [Recovered/Resolved]
  - Femoral neck fracture [Recovered/Resolved]
  - Wrist fracture [Recovered/Resolved]

NARRATIVE: CASE EVENT DATE: 20220914
